FAERS Safety Report 10163688 (Version 4)
Quarter: 2014Q2

REPORT INFORMATION
  Report Type: Spontaneous
  Country: JP (occurrence: JP)
  Receive Date: 20140509
  Receipt Date: 20140520
  Transmission Date: 20141212
  Serious: Yes (Death, Life-Threatening, Hospitalization, Disabling)
  Sender: FDA-Public Use
  Company Number: JP-B.I. PHARMACEUTICALS,INC./RIDGEFIELD-2014-BI-17399NB

PATIENT
  Age: 72 Year
  Sex: Male
  Weight: 34.1 kg

DRUGS (5)
  1. SPIRIVA [Suspect]
     Indication: CHRONIC OBSTRUCTIVE PULMONARY DISEASE
     Dosage: 5 MCG
     Route: 055
     Dates: start: 201202
  2. ZITHROMAC [Suspect]
     Indication: SPUTUM DISCOLOURED
     Dosage: 500 MG
     Route: 048
     Dates: start: 20140327, end: 20140329
  3. CLARITH [Concomitant]
     Indication: SPUTUM DISCOLOURED
     Dosage: 400 MG
     Route: 048
     Dates: start: 20140327, end: 20140331
  4. ADOAIR [Concomitant]
     Route: 055
  5. FLUTIFORM [Concomitant]
     Route: 055

REACTIONS (7)
  - Acute respiratory failure [Fatal]
  - Chronic obstructive pulmonary disease [Fatal]
  - Pneumonia [Recovered/Resolved with Sequelae]
  - Urinary retention [Unknown]
  - Sputum discoloured [Unknown]
  - Dyspnoea [Not Recovered/Not Resolved]
  - Abdominal pain lower [Not Recovered/Not Resolved]
